FAERS Safety Report 18027828 (Version 1)
Quarter: 2020Q3

REPORT INFORMATION
  Report Type: Report from Study
  Country: US (occurrence: US)
  Receive Date: 20200715
  Receipt Date: 20200715
  Transmission Date: 20201103
  Serious: Yes (Hospitalization)
  Sender: FDA-Public Use
  Company Number: US-JNJFOC-20200708747

PATIENT
  Age: 24 Year
  Sex: Male
  Weight: 93.07 kg

DRUGS (1)
  1. INFLIXIMAB, RECOMBINANT [Suspect]
     Active Substance: INFLIXIMAB
     Indication: INFLAMMATORY BOWEL DISEASE
     Route: 042
     Dates: start: 20100112

REACTIONS (1)
  - Intestinal resection [Not Recovered/Not Resolved]

NARRATIVE: CASE EVENT DATE: 20191124
